FAERS Safety Report 4399773-6 (Version None)
Quarter: 2004Q3

REPORT INFORMATION
  Report Type: 
  Country: None (occurrence: None)
  Receive Date: 20040714
  Receipt Date: 20040630
  Transmission Date: 20050211
  Serious: Yes (Hospitalization)
  Sender: FDA-Public Use
  Company Number: 04P-056-0265652-00

PATIENT
  Age: 27 Month
  Sex: Female

DRUGS (3)
  1. DEPAKENE [Suspect]
     Indication: PARTIAL SEIZURES
     Dosage: SEE IMAGE
     Route: 048
     Dates: start: 20020615, end: 20030401
  2. DEPAKENE [Suspect]
     Indication: PARTIAL SEIZURES
     Dosage: SEE IMAGE
     Route: 048
     Dates: start: 20030401, end: 20030507
  3. TRILEPTAL [Concomitant]

REACTIONS (11)
  - ASTHENIA [None]
  - BALANCE DISORDER [None]
  - CEREBELLAR ATAXIA [None]
  - CONDITION AGGRAVATED [None]
  - CONVULSION [None]
  - COUGH [None]
  - DISEASE RECURRENCE [None]
  - GAIT DISTURBANCE [None]
  - NASOPHARYNGITIS [None]
  - PARTIAL SEIZURES [None]
  - SOMNOLENCE [None]
